FAERS Safety Report 17954141 (Version 1)
Quarter: 2020Q2

REPORT INFORMATION
  Report Type: Report from Study
  Country: CA (occurrence: CA)
  Receive Date: 20200629
  Receipt Date: 20200629
  Transmission Date: 20200714
  Serious: Yes (Hospitalization, Other)
  Sender: FDA-Public Use
  Company Number: CA-ACCORD-187218

PATIENT
  Age: 53 Year
  Sex: Female

DRUGS (32)
  1. DENOSUMAB [Concomitant]
     Active Substance: DENOSUMAB
     Dosage: PRE-FILLED SYRINGE. PRESERVATIVE-FREE. SOLUTION SUBCUTANEOUS
  2. CALCIUM [Concomitant]
     Active Substance: CALCIUM
     Dosage: NOT SPECIFIED
  3. CALCIUM CARBONATE. [Concomitant]
     Active Substance: CALCIUM CARBONATE
  4. HYDROXYCHLOROQUINE [Concomitant]
     Active Substance: HYDROXYCHLOROQUINE
  5. PANTOLOC [Concomitant]
     Active Substance: PANTOPRAZOLE SODIUM
  6. VENLAFAXINE/VENLAFAXINE HYDROCHLORIDE [Concomitant]
     Active Substance: VENLAFAXINE HYDROCHLORIDE
  7. APO-SALVENT [Concomitant]
     Active Substance: ALBUTEROL
  8. IBUPROFEN. [Concomitant]
     Active Substance: IBUPROFEN
     Dosage: NOT SPECIFIED
  9. PREDNISONE. [Concomitant]
     Active Substance: PREDNISONE
     Dosage: NOT SPECIFIED
  10. ASCORBIC ACID/BIOTIN/CYANOCOBALAMIN/FOLIC ACID/NICOTINAMIDE/PYRIDOXINE HYDROCHLORIDE/RIBOFLAVIN/THIA [Concomitant]
  11. HYDROMORPH CONTIN [Concomitant]
     Active Substance: HYDROMORPHONE
     Dosage: CAPSULE, SUSTAINED RELEASE
  12. OXYGEN. [Concomitant]
     Active Substance: OXYGEN
     Dosage: GAS FOR INHALATION
  13. SPIRIVA [Concomitant]
     Active Substance: TIOTROPIUM BROMIDE MONOHYDRATE
  14. COLECALCIFEROL [Concomitant]
     Active Substance: CHOLECALCIFEROL
  15. MYCOPHENOLIC ACID. [Suspect]
     Active Substance: MYCOPHENOLIC ACID
     Indication: PRODUCT USED FOR UNKNOWN INDICATION
     Route: 065
  16. MYCOPHENOLIC ACID. [Suspect]
     Active Substance: MYCOPHENOLIC ACID
     Indication: PRODUCT USED FOR UNKNOWN INDICATION
     Route: 065
  17. CYCLOPHOSPHAMIDE/CYCLOPHOSPHAMIDE MONOHYDRATE [Suspect]
     Active Substance: CYCLOPHOSPHAMIDE
     Indication: PRODUCT USED FOR UNKNOWN INDICATION
     Dosage: NOT SPECIFIED
     Route: 065
  18. FLOVENT HFA [Concomitant]
     Active Substance: FLUTICASONE PROPIONATE
     Dosage: METERED-DOSE (AEROSOL)
  19. MIRENA [Concomitant]
     Active Substance: LEVONORGESTREL
     Dosage: INSERT (EXTENDED- RELEASE)
  20. ASCORBIC ACID. [Concomitant]
     Active Substance: ASCORBIC ACID
  21. ZOPICLONE [Concomitant]
     Active Substance: ZOPICLONE
  22. AZATHIOPRINE. [Suspect]
     Active Substance: AZATHIOPRINE
     Indication: PRODUCT USED FOR UNKNOWN INDICATION
     Dosage: NOT SPECIFIED
     Route: 065
  23. SENNOSIDE A+B [Concomitant]
     Active Substance: SENNOSIDES A AND B
     Dosage: NOT SPECIFIED
  24. IRON [Concomitant]
     Active Substance: IRON
  25. HYDROMORPHONE [Concomitant]
     Active Substance: HYDROMORPHONE
  26. MYCOPHENOLIC ACID. [Suspect]
     Active Substance: MYCOPHENOLIC ACID
     Indication: PRODUCT USED FOR UNKNOWN INDICATION
     Dosage: OPHTHALMIC
     Route: 065
  27. APO METOPROLOL [Concomitant]
     Active Substance: METOPROLOL
  28. GABAPENTIN. [Concomitant]
     Active Substance: GABAPENTIN
     Dosage: NOT SPECIFIED
  29. IRON [Concomitant]
     Active Substance: IRON
  30. PANTOPRAZOLE [Concomitant]
     Active Substance: PANTOPRAZOLE
  31. RAMIPRIL. [Concomitant]
     Active Substance: RAMIPRIL
     Dosage: NOT SPECIFIED
  32. TYLENOL [Concomitant]
     Active Substance: ACETAMINOPHEN
     Dosage: NOT SPECIFIED

REACTIONS (24)
  - Arthralgia [Not Recovered/Not Resolved]
  - Dyspnoea exertional [Not Recovered/Not Resolved]
  - Multiple fractures [Not Recovered/Not Resolved]
  - Myopathy [Not Recovered/Not Resolved]
  - Nausea [Not Recovered/Not Resolved]
  - Pain [Not Recovered/Not Resolved]
  - Vomiting [Not Recovered/Not Resolved]
  - Wheelchair user [Not Recovered/Not Resolved]
  - Complement factor C3 increased [Not Recovered/Not Resolved]
  - Musculoskeletal pain [Not Recovered/Not Resolved]
  - Respiratory disorder [Not Recovered/Not Resolved]
  - C-reactive protein increased [Not Recovered/Not Resolved]
  - Drug intolerance [Unknown]
  - Exfoliative rash [Not Recovered/Not Resolved]
  - Infection [Not Recovered/Not Resolved]
  - Osteonecrosis [Not Recovered/Not Resolved]
  - Hand deformity [Not Recovered/Not Resolved]
  - Hyperhidrosis [Not Recovered/Not Resolved]
  - Pneumonia [Not Recovered/Not Resolved]
  - Fatigue [Not Recovered/Not Resolved]
  - Respiratory failure [Not Recovered/Not Resolved]
  - White blood cells urine positive [Not Recovered/Not Resolved]
  - Blood immunoglobulin G increased [Not Recovered/Not Resolved]
  - Interstitial lung disease [Not Recovered/Not Resolved]
